FAERS Safety Report 19238680 (Version 4)
Quarter: 2021Q3

REPORT INFORMATION
  Report Type: Spontaneous
  Country: CL (occurrence: CL)
  Receive Date: 20210510
  Receipt Date: 20210827
  Transmission Date: 20211014
  Serious: Yes (Other)
  Sender: FDA-Public Use
  Company Number: CL-EMD SERONO-9167276

PATIENT
  Age: 38 Year
  Sex: Female
  Weight: 59 kg

DRUGS (3)
  1. MAVENCLAD [Suspect]
     Active Substance: CLADRIBINE
     Dosage: YEAR TWO MONTH ONE THERAPY: PRESCRIBED TO TAKE TWO TABLETS ON DAY 1 AND ONE TABLET ON DAYS 2 TO 5.
     Route: 048
     Dates: start: 202104
  2. MAVENCLAD [Suspect]
     Active Substance: CLADRIBINE
     Dosage: YEAR ONE MONTH TWO THERAPY: TWO TABLETS ON DAY 1 AND ONE TABLET ON DAYS 2 TO 5.
     Route: 048
     Dates: start: 2020, end: 20200417
  3. MAVENCLAD [Suspect]
     Active Substance: CLADRIBINE
     Indication: MULTIPLE SCLEROSIS
     Dosage: YEAR ONE MONTH ONE THERAPY: TWO TABLETS ON DAY 1 AND ONE TABLET ON DAYS 2 TO 5.
     Route: 048
     Dates: start: 202002, end: 2020

REACTIONS (7)
  - Premature rupture of membranes [Recovered/Resolved]
  - Premature labour [Recovered/Resolved]
  - Premature delivery [Recovered/Resolved]
  - Treatment noncompliance [Unknown]
  - Maternal exposure before pregnancy [Recovered/Resolved]
  - Placenta praevia [Recovered/Resolved]
  - Live birth [Recovered/Resolved]

NARRATIVE: CASE EVENT DATE: 2020
